FAERS Safety Report 5681064-4 (Version None)
Quarter: 2008Q1

REPORT INFORMATION
  Report Type: 
  Country: None (occurrence: None)
  Receive Date: 20080325
  Receipt Date: 20080314
  Transmission Date: 20080703
  Serious: Yes (Hospitalization)
  Sender: FDA-Public Use
  Company Number: 2008BI002300

PATIENT
  Age: 68 Year
  Sex: Male

DRUGS (1)
  1. AVONEX [Suspect]
     Indication: MULTIPLE SCLEROSIS
     Dosage: 30 UG QW IM
     Route: 030
     Dates: start: 19960705

REACTIONS (5)
  - BLOOD DISORDER [None]
  - INFECTION [None]
  - NEPHROLITHIASIS [None]
  - PNEUMONIA [None]
  - POST PROCEDURAL HAEMORRHAGE [None]
